FAERS Safety Report 7638405-8 (Version None)
Quarter: 2011Q3

REPORT INFORMATION
  Report Type: 
  Country: None (occurrence: None)
  Receive Date: 20110726
  Receipt Date: 20110726
  Transmission Date: 20111222
  Serious: Yes (Death, Life-Threatening)
  Sender: FDA-Public Use
  Company Number: None

PATIENT
  Sex: Male
  Weight: 69.5 kg

DRUGS (7)
  1. INCIVEK [Suspect]
     Indication: HEPATITIS C
     Dosage: 750MG TID ORAL
     Route: 048
     Dates: start: 20110601, end: 20110701
  2. CELEXA [Concomitant]
  3. NAPROXEN (ALEVE) [Concomitant]
  4. NEURONTIN [Concomitant]
  5. NEXIUM [Concomitant]
  6. HYDROXISINE HCL [Concomitant]
  7. DICLOFENATE [Concomitant]

REACTIONS (1)
  - DEATH [None]
